FAERS Safety Report 12801367 (Version 1)
Quarter: 2016Q4

REPORT INFORMATION
  Report Type: Report from Study
  Country: US (occurrence: US)
  Receive Date: 20161003
  Receipt Date: 20161003
  Transmission Date: 20170207
  Serious: Yes (Other)
  Sender: FDA-Public Use
  Company Number: US-ROCHE-1836106

PATIENT
  Sex: Female
  Weight: 53.1 kg

DRUGS (1)
  1. BEVACIZUMAB [Suspect]
     Active Substance: BEVACIZUMAB
     Indication: MALIGNANT PERITONEAL NEOPLASM
     Dosage: 22/JAN/2013, 13/FEB/2013, 05/MAR/2013, LAST TREATMENT DATE: 26/MAR/2013
     Route: 065

REACTIONS (2)
  - Hypophosphataemia [Unknown]
  - Skin infection [Unknown]
